FAERS Safety Report 7793744 (Version 2)
Quarter: 2013Q1

REPORT INFORMATION
  Report Type: Spontaneous
  Country: US (occurrence: None)
  Receive Date: 20101221
  Receipt Date: 20130222
  Transmission Date: 20140127
  Serious: Yes (Hospitalization, Other)
  Sender: FDA-Public Use
  Company Number: ACO_20809_2010

PATIENT
  Age: 54 Year
  Sex: Female

DRUGS (11)
  1. AMPYRA [Suspect]
     Indication: PRODUCT USED FOR UNKNOWN INDICATION
     Dosage: 10 MG, Q 12 HRS, ORAL
     Route: 048
     Dates: start: 20100917, end: 20100917
  2. AMANTADINE HYDROCHLORIDE [Concomitant]
  3. VYTORIN [Concomitant]
  4. VESICARE [Concomitant]
  5. PRISTIQ EXTENDED RELEASE [Concomitant]
  6. MULTIVITAMINS (ASCORBIC ACID,ERGOCALCIFEROL, FOLIC ACID, NICOTINAMIDE, PANTHENOL, RETINOL, RIBOFLAV [Concomitant]
  7. VICON /00535101/ (FOLIC ACID, MINERALS NOS, VITAMINS NOS) [Concomitant]
  8. CALCIUM W/VITAMIN D /00188401/ (CALCIUM, ERGOCALIFEROL) [Concomitant]
  9. VITAMIN B12 (CYANOCOBALAMIN) [Concomitant]
  10. VITAMIN D3 [Concomitant]
  11. COPAXONE /03175301/ (GLATIRAMER ACETATE, MANNITOL) [Concomitant]

REACTIONS (18)
  - Loss of consciousness [None]
  - Hallucination [None]
  - Mental status changes [None]
  - Muscle spasms [None]
  - Tremor [None]
  - Hyperventilation [None]
  - Screaming [None]
  - Bruxism [None]
  - Dysphonia [None]
  - Eye movement disorder [None]
  - Urinary tract infection [None]
  - Muscle disorder [None]
  - Depressed level of consciousness [None]
  - Cerebral small vessel ischaemic disease [None]
  - No therapeutic response [None]
  - Convulsion [None]
  - Depressed level of consciousness [None]
  - Demyelination [None]
